FAERS Safety Report 4800404-9 (Version None)
Quarter: 2005Q4

REPORT INFORMATION
  Report Type: 
  Country: None (occurrence: None)
  Receive Date: 20051017
  Receipt Date: 20051005
  Transmission Date: 20060501
  Serious: Yes (Other)
  Sender: FDA-Public Use
  Company Number: PHHO2005CA15774

PATIENT
  Age: 31 Year
  Sex: Male

DRUGS (1)
  1. CLOZARIL [Suspect]
     Dates: start: 20050902, end: 20050907

REACTIONS (4)
  - BODY TEMPERATURE INCREASED [None]
  - FLUSHING [None]
  - MALAISE [None]
  - TACHYCARDIA [None]
